FAERS Safety Report 5361271-0 (Version None)
Quarter: 2007Q2

REPORT INFORMATION
  Report Type: 
  Country: None (occurrence: None)
  Receive Date: 20070618
  Receipt Date: 20070608
  Transmission Date: 20071010
  Serious: Yes (Hospitalization)
  Sender: FDA-Public Use
  Company Number: ES-GENENTECH-242731

PATIENT
  Age: 19 Year
  Sex: Male

DRUGS (1)
  1. XOLAIR [Suspect]
     Indication: ASTHMA
     Dosage: UNK, UNKNOWN
     Route: 058
     Dates: start: 20070201

REACTIONS (2)
  - LYMPHADENOPATHY [None]
  - VIRAL INFECTION [None]
